FAERS Safety Report 19547632 (Version 1)
Quarter: 2021Q3

REPORT INFORMATION
  Report Type: Spontaneous
  Country: US (occurrence: US)
  Receive Date: 20210714
  Receipt Date: 20210714
  Transmission Date: 20211014
  Serious: Yes (Hospitalization)
  Sender: FDA-Public Use
  Company Number: None

PATIENT
  Age: 42 Year
  Sex: Male
  Weight: 149 kg

DRUGS (2)
  1. LORAZEPAM 0.5 MG X 1 DOSE [Concomitant]
     Dates: start: 20210711, end: 20210711
  2. CASIRIVIMAB/IMDEVIMAB [Suspect]
     Active Substance: CASIRIVIMAB\IMDEVIMAB
     Indication: COVID-19
     Dosage: ?          OTHER FREQUENCY:ONCE;?
     Route: 041
     Dates: start: 20210711, end: 20210711

REACTIONS (2)
  - Hypotension [None]
  - Infusion related reaction [None]

NARRATIVE: CASE EVENT DATE: 20210711
